FAERS Safety Report 8956650 (Version 1)
Quarter: 2012Q4

REPORT INFORMATION
  Report Type: 
  Country: US (occurrence: US)
  Receive Date: 20121210
  Receipt Date: 20121210
  Transmission Date: 20130627
  Serious: Yes (Other)
  Sender: FDA-Public Use
  Company Number: US-BAYER-2012-100884

PATIENT
  Age: 80 Year
  Sex: Male

DRUGS (4)
  1. SORAFENIB (RAF KINASE INHIBITOR) [Suspect]
     Indication: LIVER, CANCER OF
     Dosage: 200 mg, BID
     Route: 048
     Dates: start: 20120919
  2. SORAFENIB (RAF KINASE INHIBITOR) [Suspect]
     Indication: LIVER, CANCER OF
     Dosage: 200mg AM and 400mg PM
     Route: 048
     Dates: start: 201210, end: 201211
  3. SORAFENIB (RAF KINASE INHIBITOR) [Suspect]
     Indication: LIVER, CANCER OF
     Dosage: 200 mg, QD
     Route: 048
     Dates: start: 20121128
  4. ANTIHYPERTENSIVES [Concomitant]

REACTIONS (8)
  - Mobility decreased [None]
  - Blood pressure increased [Not Recovered/Not Resolved]
  - Rash erythematous [Not Recovered/Not Resolved]
  - Rash [Not Recovered/Not Resolved]
  - Fatigue [None]
  - Somnolence [Not Recovered/Not Resolved]
  - Hypersomnia [None]
  - Memory impairment [Not Recovered/Not Resolved]
